FAERS Safety Report 8408218-8 (Version None)
Quarter: 2012Q2

REPORT INFORMATION
  Report Type: 
  Country: None (occurrence: None)
  Receive Date: 20120604
  Receipt Date: 20120524
  Transmission Date: 20120825
  Serious: Yes (Hospitalization, Other)
  Sender: FDA-Public Use
  Company Number: US-ELI_LILLY_AND_COMPANY-US201205009443

PATIENT
  Sex: Female

DRUGS (1)
  1. FORTEO [Suspect]
     Indication: SPINAL DEFORMITY
     Dosage: 20 UG, QD

REACTIONS (4)
  - RIB FRACTURE [None]
  - MOBILITY DECREASED [None]
  - OFF LABEL USE [None]
  - FALL [None]
